FAERS Safety Report 4389632-7 (Version None)
Quarter: 2004Q2

REPORT INFORMATION
  Report Type: 
  Country: None (occurrence: None)
  Receive Date: 20040629
  Receipt Date: 20030707
  Transmission Date: 20050107
  Serious: Yes (Hospitalization)
  Sender: FDA-Public Use
  Company Number: NSADSS2003015015

PATIENT
  Age: 64 Year
  Sex: Male

DRUGS (11)
  1. DURAGESIC [Suspect]
     Indication: PAIN
     Dosage: 100 UG/HR, 1 IN 48 HOUR, TRANSDERMAL
     Route: 062
     Dates: start: 20020101
  2. VICODIN (VICODIN) TABLETS [Concomitant]
  3. MYTELASE [Concomitant]
  4. COLACE (DOCUSATE SODIUM) TABLETS [Concomitant]
  5. PREVACID [Concomitant]
  6. MAXZIDE [Concomitant]
  7. LEVOXYL (LEVOTHYROXINE SODIUM) TABLETS [Concomitant]
  8. VIOXX [Concomitant]
  9. REGLAN (METOCLOPRAMIDE) TABLETS [Concomitant]
  10. TEGRALOL (CARBAMAZEPINE) TABLETS [Concomitant]
  11. PAXIL [Concomitant]

REACTIONS (2)
  - DRUG WITHDRAWAL SYNDROME [None]
  - THERAPEUTIC RESPONSE DECREASED [None]
